FAERS Safety Report 16656709 (Version 2)
Quarter: 2019Q3

REPORT INFORMATION
  Report Type: Spontaneous
  Country: ID (occurrence: ID)
  Receive Date: 20190801
  Receipt Date: 20190803
  Transmission Date: 20191004
  Serious: Yes (Death, Hospitalization, Other)
  Sender: FDA-Public Use
  Company Number: PHHY2019ID160720

PATIENT
  Age: 65 Year
  Sex: Male

DRUGS (2)
  1. VOTRIENT [Suspect]
     Active Substance: PAZOPANIB HYDROCHLORIDE
     Dosage: 400 MG, QD
     Route: 065
  2. VOTRIENT [Suspect]
     Active Substance: PAZOPANIB HYDROCHLORIDE
     Dosage: 800 MG, QD
     Route: 065
     Dates: start: 20190604

REACTIONS (9)
  - Malignant neoplasm progression [Unknown]
  - Alanine aminotransferase increased [Unknown]
  - Intra-abdominal haemorrhage [Unknown]
  - Flank pain [Not Recovered/Not Resolved]
  - Aspartate aminotransferase increased [Unknown]
  - Death [Fatal]
  - Clear cell renal cell carcinoma [Unknown]
  - Psoas abscess [Unknown]
  - Metastases to liver [Unknown]

NARRATIVE: CASE EVENT DATE: 20190707
